FAERS Safety Report 6559511-5 (Version None)
Quarter: 2010Q1

REPORT INFORMATION
  Report Type: 
  Country: None (occurrence: None)
  Receive Date: 20100129
  Receipt Date: 20090908
  Transmission Date: 20100710
  Serious: Yes (Other)
  Sender: FDA-Public Use
  Company Number: US-ABBOTT-09P-163-0595800-00

PATIENT
  Sex: Male
  Weight: 102.15 kg

DRUGS (13)
  1. HUMIRA [Suspect]
     Indication: RHEUMATOID ARTHRITIS
     Dates: start: 20080101
  2. HUMIRA [Suspect]
  3. METHOTREXATE [Concomitant]
     Indication: RHEUMATOID ARTHRITIS
  4. DILANTIN [Concomitant]
     Indication: CONVULSION
  5. HYDROCODONE [Concomitant]
     Indication: PAIN
  6. IBUPROFEN [Concomitant]
     Indication: PAIN
  7. VITAMIN D [Concomitant]
     Indication: DRUG USE FOR UNKNOWN INDICATION
  8. CALCIUM [Concomitant]
     Indication: DRUG USE FOR UNKNOWN INDICATION
  9. ASPIRIN [Concomitant]
     Indication: DRUG USE FOR UNKNOWN INDICATION
  10. AMBIEN [Concomitant]
     Indication: INSOMNIA
     Dosage: 0.5 TAB
  11. SENNA [Concomitant]
     Indication: FAECES HARD
  12. GLUCOSOMINE [Concomitant]
     Indication: DRUG USE FOR UNKNOWN INDICATION
  13. FOLIC ACID [Concomitant]
     Indication: DRUG USE FOR UNKNOWN INDICATION

REACTIONS (4)
  - DRUG DOSE OMISSION [None]
  - HYPOAESTHESIA [None]
  - LOCALISED INFECTION [None]
  - PARAESTHESIA [None]
